FAERS Safety Report 5412844-8 (Version None)
Quarter: 2007Q3

REPORT INFORMATION
  Report Type: 
  Country: None (occurrence: None)
  Receive Date: 20070809
  Receipt Date: 20070724
  Transmission Date: 20080115
  Serious: Yes (Hospitalization, Other)
  Sender: FDA-Public Use
  Company Number: 2007US-07157

PATIENT
  Age: 86 Year
  Sex: Female

DRUGS (1)
  1. NITROFURANTOIN [Suspect]
     Indication: URINARY TRACT INFECTION
     Dosage: ORAL
     Route: 048
     Dates: start: 20070119, end: 20070122

REACTIONS (17)
  - ACTIVITIES OF DAILY LIVING IMPAIRED [None]
  - DRUG HYPERSENSITIVITY [None]
  - DYSPHAGIA [None]
  - DYSPNOEA [None]
  - FALL [None]
  - GASTRIC HAEMORRHAGE [None]
  - JOINT SWELLING [None]
  - MENTAL STATUS CHANGES [None]
  - OEDEMA PERIPHERAL [None]
  - OESOPHAGITIS [None]
  - PAIN IN EXTREMITY [None]
  - PANCREATIC INSUFFICIENCY [None]
  - PANCREATITIS CHRONIC [None]
  - RASH [None]
  - SCAPULA FRACTURE [None]
  - WEIGHT DECREASED [None]
  - WRIST FRACTURE [None]
